FAERS Safety Report 18630103 (Version 1)
Quarter: 2020Q4

REPORT INFORMATION
  Report Type: Report from Study
  Country: US (occurrence: US)
  Receive Date: 20201217
  Receipt Date: 20201217
  Transmission Date: 20210114
  Serious: No
  Sender: FDA-Public Use
  Company Number: US-AGIOS-2012US02341

PATIENT

DRUGS (1)
  1. TIBSOVO [Suspect]
     Active Substance: IVOSIDENIB
     Indication: COLON CANCER
     Dosage: 250 MILLIGRAM, BID
     Route: 048

REACTIONS (2)
  - Off label use [Recovered/Resolved]
  - Disease progression [Unknown]
